FAERS Safety Report 16671006 (Version 3)
Quarter: 2021Q2

REPORT INFORMATION
  Report Type: Spontaneous
  Country: US (occurrence: US)
  Receive Date: 20190805
  Receipt Date: 20210521
  Transmission Date: 20210716
  Serious: No
  Sender: FDA-Public Use
  Company Number: US-RADIUS HEALTH INC.-2019US002485

PATIENT

DRUGS (2)
  1. TYMLOS [Suspect]
     Active Substance: ABALOPARATIDE
     Dosage: 80MCG/QD
     Route: 058
  2. TYMLOS [Suspect]
     Active Substance: ABALOPARATIDE
     Indication: OSTEOPOROSIS POSTMENOPAUSAL
     Dosage: 80MCG/QD
     Route: 058
     Dates: start: 20190717

REACTIONS (4)
  - Feeling abnormal [Not Recovered/Not Resolved]
  - Product quality issue [Unknown]
  - Wrong technique in product usage process [Unknown]
  - Dizziness [Not Recovered/Not Resolved]

NARRATIVE: CASE EVENT DATE: 20190717
